FAERS Safety Report 9010402 (Version 1)
Quarter: 2013Q1

REPORT INFORMATION
  Report Type: Spontaneous
  Country: US (occurrence: US)
  Receive Date: 20130109
  Receipt Date: 20130109
  Transmission Date: 20140127
  Serious: No
  Sender: FDA-Public Use
  Company Number: US-BAYER-2013-000043

PATIENT
  Age: 65 Year
  Sex: Male

DRUGS (2)
  1. NEXAVAR [Suspect]
     Indication: COLON CANCER
     Dosage: UNK
     Dates: end: 201212
  2. NEXAVAR [Suspect]
     Indication: COLON CANCER
     Dosage: 1 DF, BID
     Dates: start: 201212

REACTIONS (3)
  - Abdominal pain [Recovered/Resolved]
  - Blister [Not Recovered/Not Resolved]
  - Scab [Not Recovered/Not Resolved]
